FAERS Safety Report 9644128 (Version 2)
Quarter: 2013Q4

REPORT INFORMATION
  Report Type: Report from Study
  Country: CN (occurrence: CN)
  Receive Date: 20131024
  Receipt Date: 20131024
  Transmission Date: 20140711
  Serious: Yes (Hospitalization, Other)
  Sender: FDA-Public Use
  Company Number: CN-GILEAD-2013-0083934

PATIENT
  Age: 57 Year
  Sex: Male

DRUGS (4)
  1. ADEFOVIR DIPIVOXIL [Suspect]
     Indication: CHRONIC HEPATITIS B
     Dosage: 10 MG, QD
     Route: 048
     Dates: end: 20120209
  2. ENTECAVIR [Concomitant]
     Indication: CHRONIC HEPATITIS B
     Dosage: 0.5 MG, QD
     Route: 048
  3. AMLODIPINE [Concomitant]
  4. LOSARTAN [Concomitant]

REACTIONS (6)
  - Neuropathy peripheral [Recovered/Resolved with Sequelae]
  - Hypophosphataemia [Recovered/Resolved]
  - Osteomalacia [Recovered/Resolved]
  - Muscular weakness [Recovered/Resolved]
  - Osteoarthritis [Not Recovered/Not Resolved]
  - Local swelling [Unknown]
